FAERS Safety Report 13966324 (Version 1)
Quarter: 2017Q3

REPORT INFORMATION
  Report Type: Spontaneous
  Country: US (occurrence: US)
  Receive Date: 20170913
  Receipt Date: 20170913
  Transmission Date: 20171128
  Serious: No
  Sender: FDA-Public Use
  Company Number: US-TEVA-804887ACC

PATIENT
  Sex: Female

DRUGS (2)
  1. GRANIX [Suspect]
     Active Substance: TBO-FILGRASTIM
  2. IBRANCE [Concomitant]
     Active Substance: PALBOCICLIB
     Dosage: FOR 21 DAYS FOLLOWED BY 7 DAYS REST
     Route: 048

REACTIONS (2)
  - Bone pain [Unknown]
  - Headache [Unknown]
